FAERS Safety Report 4840272-2 (Version None)
Quarter: 2005Q4

REPORT INFORMATION
  Report Type: 
  Country: None (occurrence: None)
  Receive Date: 20051125
  Receipt Date: 20051108
  Transmission Date: 20060501
  Serious: Yes (Other)
  Sender: FDA-Public Use
  Company Number: 2005-134507-NL

PATIENT
  Age: 30 Year
  Sex: Female
  Weight: 109.3 kg

DRUGS (10)
  1. NUVARING [Suspect]
     Indication: CONTRACEPTION
     Dosage: VAGINAL
     Route: 067
     Dates: start: 20020901
  2. METOPROLOL [Concomitant]
  3. ZANTAC [Concomitant]
  4. NORVASC [Concomitant]
  5. PLAQUENIL [Concomitant]
  6. CELLCEPT [Concomitant]
  7. HUMULIN INSULIN [Concomitant]
  8. LASIX [Concomitant]
  9. ACTIMOL [Concomitant]
  10. PREDNISONE [Concomitant]

REACTIONS (1)
  - ARTERIAL THROMBOSIS LIMB [None]
